FAERS Safety Report 12673540 (Version 1)
Quarter: 2016Q3

REPORT INFORMATION
  Report Type: Spontaneous
  Country: RU (occurrence: RU)
  Receive Date: 20160822
  Receipt Date: 20160822
  Transmission Date: 20161109
  Serious: Yes (Hospitalization)
  Sender: FDA-Public Use
  Company Number: RU-TEVA-670902ISR

PATIENT
  Age: 48 Year
  Sex: Female
  Weight: 59 kg

DRUGS (3)
  1. RYZODEG 70/30 [Concomitant]
     Active Substance: INSULIN ASPART\INSULIN DEGLUDEC
     Dosage: 30 UNITS X 2 TIMES A DAY
  2. SUMAMED [Suspect]
     Active Substance: AZITHROMYCIN ANHYDROUS
     Indication: CARBUNCLE
     Dosage: 2 GRAM DAILY; FOR 4,5 DAYS
  3. NOVORAPID [Concomitant]
     Active Substance: INSULIN ASPART
     Dosage: 10 UNITS AT DAYTIME

REACTIONS (3)
  - Dysgeusia [Recovered/Resolved]
  - Overdose [Unknown]
  - Limb discomfort [Recovered/Resolved]
